FAERS Safety Report 15440299 (Version 1)
Quarter: 2018Q3

REPORT INFORMATION
  Report Type: Spontaneous
  Country: IT (occurrence: IT)
  Receive Date: 20180928
  Receipt Date: 20180928
  Transmission Date: 20181010
  Serious: Yes (Hospitalization)
  Sender: FDA-Public Use
  Company Number: IT-SA-2018SA268856

PATIENT
  Age: 7 Year
  Sex: Male

DRUGS (1)
  1. XYZALL [Suspect]
     Active Substance: LEVOCETIRIZINE DIHYDROCHLORIDE
     Indication: RHINITIS ALLERGIC
     Dosage: 1 DF, TOTAL
     Route: 055
     Dates: start: 20180907, end: 20180907

REACTIONS (3)
  - Medication error [Recovering/Resolving]
  - Conjunctival hyperaemia [Recovering/Resolving]
  - Cough [Recovering/Resolving]
